FAERS Safety Report 5706124-0 (Version None)
Quarter: 2008Q2

REPORT INFORMATION
  Report Type: 
  Country: None (occurrence: None)
  Receive Date: 20080411
  Receipt Date: 20071016
  Transmission Date: 20081010
  Serious: Yes (Other)
  Sender: FDA-Public Use
  Company Number: 2007RR-08993

PATIENT
  Age: 74 Year
  Sex: Female

DRUGS (6)
  1. GABAPENTINA RANBAXY 300MG CAPSULES EFG (GABAPENTIN) UNKNOWN [Suspect]
     Dosage: 300 MG, QD,; 300 MG, TID,; 1200 MG, QD,
  2. OXYGEN (OXYGEN) [Concomitant]
  3. LEVOFLOXACIN [Concomitant]
  4. IPRATROPIUM BROMIDE [Concomitant]
  5. SALMETEROL (SALMETEROL) [Concomitant]
  6. FLUTICASONE PROPIONATE [Concomitant]

REACTIONS (9)
  - ABDOMINAL PAIN [None]
  - BLOOD BICARBONATE INCREASED [None]
  - BLOOD PH DECREASED [None]
  - DEPRESSED LEVEL OF CONSCIOUSNESS [None]
  - HYPERKALAEMIA [None]
  - HYPERSOMNIA [None]
  - HYPOVENTILATION [None]
  - PCO2 INCREASED [None]
  - PO2 DECREASED [None]
